FAERS Safety Report 8829285 (Version 1)
Quarter: 2012Q4

REPORT INFORMATION
  Report Type: Spontaneous
  Country: US (occurrence: None)
  Receive Date: 20121005
  Receipt Date: 20121005
  Transmission Date: 20130627
  Serious: No
  Sender: FDA-Public Use
  Company Number: None

PATIENT
  Age: 39 Year
  Sex: Female
  Weight: 86.18 kg

DRUGS (1)
  1. ACETAMINOPHEN AND DIPHENHYDRAMINE HYDROCHLORIDE [Suspect]
     Route: 048
     Dates: start: 20120919

REACTIONS (6)
  - Oedema peripheral [None]
  - Swollen tongue [None]
  - Rash erythematous [None]
  - Urticaria [None]
  - Throat tightness [None]
  - Flushing [None]
